FAERS Safety Report 5117174-X (Version None)
Quarter: 2006Q3

REPORT INFORMATION
  Report Type: 
  Country: None (occurrence: None)
  Receive Date: 20060929
  Receipt Date: 20060925
  Transmission Date: 20061208
  Serious: Yes (Hospitalization)
  Sender: FDA-Public Use
  Company Number: FR-SP-2006-02525

PATIENT
  Age: 64 Year
  Sex: Male

DRUGS (2)
  1. IMMUCYST [Suspect]
     Route: 065
     Dates: end: 20060606
  2. IMMUCYST [Suspect]
     Route: 065
     Dates: end: 20060606

REACTIONS (2)
  - DYSURIA [None]
  - PANCREATITIS ACUTE [None]
